FAERS Safety Report 17148978 (Version 2)
Quarter: 2019Q4

REPORT INFORMATION
  Report Type: Spontaneous
  Country: DE (occurrence: DE)
  Receive Date: 20191213
  Receipt Date: 20191225
  Transmission Date: 20200122
  Serious: Yes (Other)
  Sender: FDA-Public Use
  Company Number: DE-AMGEN-DEUSP2019182395

PATIENT
  Age: 52 Year
  Sex: Male
  Weight: 113 kg

DRUGS (3)
  1. IBUPROFEN. [Concomitant]
     Active Substance: IBUPROFEN
     Dosage: UNK UNK, AS NEEDED
     Route: 048
  2. ENBREL [Suspect]
     Active Substance: ETANERCEPT
     Indication: PRODUCT USED FOR UNKNOWN INDICATION
     Dosage: 50 MILLIGRAM, QWK
     Route: 058
     Dates: start: 20190925, end: 20191009
  3. IBUPROFEN. [Concomitant]
     Active Substance: IBUPROFEN
     Indication: PAIN
     Dosage: UNK UNK, AS NECESSARY
     Route: 048

REACTIONS (6)
  - Diarrhoea [Recovered/Resolved]
  - Influenza [Recovered/Resolved]
  - Hypertension [Recovered/Resolved]
  - Peripheral swelling [Recovered/Resolved]
  - Nausea [Recovered/Resolved]
  - Headache [Recovered/Resolved]

NARRATIVE: CASE EVENT DATE: 20191002
